FAERS Safety Report 11070039 (Version 1)
Quarter: 2015Q2

REPORT INFORMATION
  Report Type: Spontaneous
  Country: US (occurrence: US)
  Receive Date: 20150427
  Receipt Date: 20150427
  Transmission Date: 20150821
  Serious: No
  Sender: FDA-Public Use
  Company Number: US-ALLERGAN-1420524US

PATIENT
  Sex: Female

DRUGS (1)
  1. TIMOLOL MALEATE. [Suspect]
     Active Substance: TIMOLOL MALEATE
     Indication: GLAUCOMA

REACTIONS (3)
  - Musculoskeletal disorder [Unknown]
  - Torticollis [Unknown]
  - Photosensitivity reaction [Unknown]
